FAERS Safety Report 4811983-X (Version None)
Quarter: 2005Q4

REPORT INFORMATION
  Report Type: 
  Country: None (occurrence: None)
  Receive Date: 20051028
  Receipt Date: 20041022
  Transmission Date: 20060501
  Serious: No
  Sender: FDA-Public Use
  Company Number: US-GLAXOSMITHKLINE-A0530918A

PATIENT
  Age: 73 Year
  Sex: Female
  Weight: 54.5 kg

DRUGS (10)
  1. ADVAIR DISKUS 100/50 [Suspect]
     Indication: ASTHMA
     Dosage: 1PUFF PER DAY
     Route: 055
     Dates: start: 20010401
  2. LUMIGAN [Concomitant]
  3. PREMPRO [Concomitant]
  4. OMEPRAZOLE [Concomitant]
     Route: 065
  5. ALBUTEROL [Concomitant]
     Indication: ASTHMA
     Dosage: 2PUFF AS REQUIRED
     Dates: start: 19920101
  6. NORVASC [Concomitant]
  7. TRIAMTERENE [Concomitant]
  8. SINGULAIR [Concomitant]
     Indication: ASTHMA
     Dosage: 10MG PER DAY
     Route: 048
     Dates: start: 19990201
  9. LORATADINE [Concomitant]
     Dosage: 10MG AS REQUIRED
     Route: 048
     Dates: start: 20000901
  10. DIDRONEL [Concomitant]

REACTIONS (5)
  - BURNING SENSATION [None]
  - DRY MOUTH [None]
  - DRY THROAT [None]
  - NASAL DRYNESS [None]
  - PHARMACEUTICAL PRODUCT COMPLAINT [None]
